FAERS Safety Report 17854574 (Version 2)
Quarter: 2020Q3

REPORT INFORMATION
  Report Type: Report from Study
  Country: US (occurrence: US)
  Receive Date: 20200603
  Receipt Date: 20200912
  Transmission Date: 20201103
  Serious: No
  Sender: FDA-Public Use
  Company Number: NVSC2020US152781

PATIENT
  Sex: Male

DRUGS (1)
  1. OMNITROPE [Suspect]
     Active Substance: SOMATROPIN
     Indication: PRODUCT USED FOR UNKNOWN INDICATION
     Dosage: 10 OT, UNKNOWN (SINCE 5 MONTHS AGO)
     Route: 065

REACTIONS (3)
  - Device breakage [Unknown]
  - Incorrect dose administered [Unknown]
  - Device delivery system issue [Unknown]
